FAERS Safety Report 8341674-2 (Version None)
Quarter: 2012Q2

REPORT INFORMATION
  Report Type: 
  Country: None (occurrence: None)
  Receive Date: 20120507
  Receipt Date: 20120426
  Transmission Date: 20120825
  Serious: Yes (Hospitalization)
  Sender: FDA-Public Use
  Company Number: US-ASTRAZENECA-2012SE23091

PATIENT
  Age: 67 Year
  Sex: Female
  Weight: 65.8 kg

DRUGS (15)
  1. LUTEIN [Concomitant]
     Indication: MEDICAL DIET
     Route: 048
  2. SEROQUEL [Suspect]
     Route: 048
     Dates: start: 20110101
  3. ZINC ACETATE [Concomitant]
     Indication: MINERAL SUPPLEMENTATION
     Route: 048
  4. CHLORTOMAZINE [Concomitant]
     Dosage: DAILY
     Route: 048
  5. DICYCLOMINE [Concomitant]
     Route: 048
  6. SEROQUEL [Suspect]
     Indication: SCHIZOPHRENIA
     Route: 048
     Dates: start: 19970101, end: 20110101
  7. PROZAC [Concomitant]
     Dosage: AT NIGHT
     Route: 048
  8. POTASSIUM CHLORIDE [Concomitant]
     Indication: DEHYDRATION
     Route: 048
  9. BUSPAR [Concomitant]
     Dosage: DAILY
     Route: 048
  10. DIAZEPAM [Concomitant]
     Indication: SCHIZOPHRENIA
     Route: 048
  11. OTHER MEDICATION [Concomitant]
  12. DEPAKOTE [Concomitant]
     Indication: CONVULSION
     Route: 048
  13. NEURONTIN [Concomitant]
     Indication: ARTHRITIS
     Route: 048
  14. GINGER ROOT [Concomitant]
     Indication: MEDICAL DIET
     Route: 048
  15. VITAMIN D [Concomitant]
     Indication: VITAMIN SUPPLEMENTATION
     Route: 048

REACTIONS (7)
  - INTENTIONAL DRUG MISUSE [None]
  - BILE DUCT STONE [None]
  - MALAISE [None]
  - DIABETES MELLITUS [None]
  - TREMOR [None]
  - DEPRESSED MOOD [None]
  - MICROCYTIC ANAEMIA [None]
